FAERS Safety Report 4679651-5 (Version None)
Quarter: 2005Q2

REPORT INFORMATION
  Report Type: 
  Country: None (occurrence: None)
  Receive Date: 20050602
  Receipt Date: 20050328
  Transmission Date: 20051028
  Serious: Yes (Other)
  Sender: FDA-Public Use
  Company Number: US-NOVOPROD-243172

PATIENT
  Age: 42 Year
  Sex: Female

DRUGS (3)
  1. NOVOSEVEN [Suspect]
     Indication: FACTOR VII DEFICIENCY
     Dosage: 2.4 MG, SINGLE
  2. NOVOSEVEN [Suspect]
     Dosage: 3.6 MG, SINGLE
  3. NOVOSEVEN [Suspect]
     Dosage: 1.2 MG, SINGLE

REACTIONS (2)
  - MEDICAL DEVICE COMPLICATION [None]
  - THROMBOSIS IN DEVICE [None]
